FAERS Safety Report 21478445 (Version 1)
Quarter: 2022Q4

REPORT INFORMATION
  Report Type: Spontaneous
  Country: US (occurrence: None)
  Receive Date: 20221018
  Receipt Date: 20221018
  Transmission Date: 20230112
  Serious: Yes (Hospitalization)
  Sender: FDA-Public Use
  Company Number: None

PATIENT
  Age: 47 Year
  Sex: Female
  Weight: 81.5 kg

DRUGS (1)
  1. VENOFER [Suspect]
     Active Substance: IRON SUCROSE
     Indication: Iron deficiency anaemia
     Dosage: FREQUENCY : WEEKLY;?
     Route: 041
     Dates: start: 20220913

REACTIONS (3)
  - Chest discomfort [None]
  - Tremor [None]
  - Chills [None]

NARRATIVE: CASE EVENT DATE: 20221007
